FAERS Safety Report 4882986-4 (Version None)
Quarter: 2006Q1

REPORT INFORMATION
  Report Type: 
  Country: None (occurrence: None)
  Receive Date: 20060118
  Receipt Date: 20051206
  Transmission Date: 20060701
  Serious: Yes (Life-Threatening, Hospitalization, Other)
  Sender: FDA-Public Use
  Company Number: JP-BRISTOL-MYERS SQUIBB COMPANY-13205976

PATIENT
  Age: 45 Year
  Sex: Female

DRUGS (11)
  1. PARAPLATIN [Suspect]
     Indication: OVARIAN CANCER
     Route: 041
     Dates: start: 20051102, end: 20051102
  2. TAXOL [Suspect]
     Indication: OVARIAN CANCER
     Route: 041
     Dates: start: 20051102, end: 20051102
  3. SOLULACT [Concomitant]
     Route: 041
     Dates: start: 20051117, end: 20051130
  4. ACETATED RINGERS [Concomitant]
     Route: 041
     Dates: start: 20051117, end: 20051130
  5. SOLDEM 3A [Concomitant]
     Route: 041
     Dates: start: 20051117, end: 20051130
  6. CARBENIN [Concomitant]
     Route: 041
     Dates: start: 20051121, end: 20051130
  7. IMMUNE GLOBULIN INTRAVENOUS (HUMAN) [Concomitant]
     Route: 041
     Dates: start: 20051121, end: 20051125
  8. CLINDAMYCIN PHOSPHATE [Concomitant]
     Route: 041
     Dates: start: 20051121, end: 20051130
  9. DORMICUM [Concomitant]
     Route: 041
     Dates: start: 20051126, end: 20051130
  10. GABEXATE MESILATE [Concomitant]
     Route: 041
     Dates: start: 20051126, end: 20051130
  11. NEUART [Concomitant]
     Route: 041
     Dates: start: 20051126, end: 20051130

REACTIONS (4)
  - BLOOD PRESSURE DECREASED [None]
  - DEPRESSED LEVEL OF CONSCIOUSNESS [None]
  - ILEUS PARALYTIC [None]
  - PANCYTOPENIA [None]
